FAERS Safety Report 6793624-8 (Version None)
Quarter: 2010Q2

REPORT INFORMATION
  Report Type: 
  Country: None (occurrence: None)
  Receive Date: 20100624
  Receipt Date: 20081222
  Transmission Date: 20101027
  Serious: No
  Sender: FDA-Public Use
  Company Number: US-PFIZER INC-2008159561

PATIENT
  Sex: Male
  Weight: 90.718 kg

DRUGS (4)
  1. XALATAN [Suspect]
     Dosage: FREQUENCY: OS, EVERYDAY;
     Route: 047
     Dates: start: 20051128, end: 20081201
  2. ALL OTHER THERAPEUTIC PRODUCTS [Concomitant]
     Dosage: UNK
     Route: 047
  3. AZOPT [Concomitant]
     Dosage: UNK
     Route: 047
  4. ACTOS [Concomitant]
     Dosage: UNK

REACTIONS (2)
  - EYE IRRITATION [None]
  - OCULAR HYPERAEMIA [None]
